FAERS Safety Report 6614374-4 (Version None)
Quarter: 2010Q1

REPORT INFORMATION
  Report Type: 
  Country: None (occurrence: None)
  Receive Date: 20100303
  Receipt Date: 20100303
  Transmission Date: 20100710
  Serious: No
  Sender: FDA-Public Use
  Company Number: None

PATIENT
  Age: 43 Year
  Sex: Female
  Weight: 61.2356 kg

DRUGS (2)
  1. DYSPORT [Suspect]
     Indication: INJECTION
     Dates: start: 20100121, end: 20100121
  2. DYSPORT [Suspect]
     Indication: SKIN WRINKLING
     Dates: start: 20100121, end: 20100121

REACTIONS (14)
  - CYST [None]
  - DYSARTHRIA [None]
  - DYSPHAGIA [None]
  - EYELID PTOSIS [None]
  - FATIGUE [None]
  - INFLUENZA LIKE ILLNESS [None]
  - MIGRAINE [None]
  - MUSCLE TIGHTNESS [None]
  - MUSCULAR WEAKNESS [None]
  - MUSCULOSKELETAL STIFFNESS [None]
  - MYALGIA [None]
  - SWELLING [None]
  - SWELLING FACE [None]
  - VISION BLURRED [None]
